FAERS Safety Report 11686772 (Version 1)
Quarter: 2015Q4

REPORT INFORMATION
  Report Type: Spontaneous
  Country: FR (occurrence: FR)
  Receive Date: 20151030
  Receipt Date: 20151030
  Transmission Date: 20160304
  Serious: Yes (Hospitalization)
  Sender: FDA-Public Use
  Company Number: FR-SA-2015SA168967

PATIENT
  Age: 89 Year
  Sex: Female

DRUGS (12)
  1. ATARAX [Concomitant]
     Active Substance: HYDROXYZINE\HYDROXYZINE HYDROCHLORIDE
     Dosage: STRENGTH: 25 MG
     Route: 048
  2. STILNOX [Concomitant]
     Active Substance: ZOLPIDEM TARTRATE
     Dosage: STRENGTH: 10 MG
     Route: 048
  3. LERCAN [Concomitant]
     Active Substance: LERCANIDIPINE
     Dosage: STRENGTH: 10 MG
     Route: 048
  4. LOVENOX [Concomitant]
     Active Substance: ENOXAPARIN SODIUM
     Dosage: DOSE: 0.4 (UNITS UNKNOWN)
     Route: 058
  5. PRIMPERAN [Concomitant]
     Active Substance: METOCLOPRAMIDE HYDROCHLORIDE
     Dosage: STRENGTH: 10 MG
     Route: 048
  6. BISOPROLOL [Concomitant]
     Active Substance: BISOPROLOL
     Dosage: STRENGTH: 10 MG
  7. SMECTA [Concomitant]
     Active Substance: MONTMORILLONITE
     Route: 048
  8. PANTOPRAZOLE [Concomitant]
     Active Substance: PANTOPRAZOLE SODIUM
     Dosage: STRENGTH: 40 (UNITS UNKNOWN)
  9. RIFADINE [Suspect]
     Active Substance: RIFAMPIN
     Indication: INFECTION
     Route: 048
     Dates: start: 20150715, end: 20150809
  10. ATACAND [Concomitant]
     Active Substance: CANDESARTAN CILEXETIL
     Dosage: STRENGTH:16 MG
     Route: 048
  11. DOLIPRANE [Concomitant]
     Active Substance: ACETAMINOPHEN
     Dosage: STRENGTH: 500 (UNITS UNKNOWN)
     Route: 048
  12. OFLOXACIN ARROW [Suspect]
     Active Substance: OFLOXACIN
     Indication: INFECTION
     Route: 048
     Dates: start: 20150711, end: 20150809

REACTIONS (1)
  - Purpura non-thrombocytopenic [Recovered/Resolved]

NARRATIVE: CASE EVENT DATE: 20150807
